FAERS Safety Report 6877484-2 (Version None)
Quarter: 2010Q3

REPORT INFORMATION
  Report Type: 
  Country: None (occurrence: None)
  Receive Date: 20100727
  Receipt Date: 20091118
  Transmission Date: 20110219
  Serious: Yes (Other)
  Sender: FDA-Public Use
  Company Number: US-ABBOTT-09P-163-0608016-00

PATIENT
  Sex: Female
  Weight: 57.204 kg

DRUGS (3)
  1. SYNTHROID [Suspect]
     Indication: HYPOTHYROIDISM
     Dosage: VARIOUS DOSES
     Dates: start: 19790101
  2. VITAMINS [Concomitant]
     Indication: VITAMIN SUPPLEMENTATION
  3. BIOTIN [Concomitant]
     Indication: PRODUCT USED FOR UNKNOWN INDICATION

REACTIONS (3)
  - CHEST PAIN [None]
  - FEELING OF BODY TEMPERATURE CHANGE [None]
  - TREMOR [None]
